FAERS Safety Report 23830414 (Version 1)
Quarter: 2024Q2

REPORT INFORMATION
  Report Type: Report from Study
  Country: US (occurrence: US)
  Receive Date: 20240508
  Receipt Date: 20240508
  Transmission Date: 20240715
  Serious: Yes (Hospitalization, Other)
  Sender: FDA-Public Use
  Company Number: US-Accord-422488

PATIENT
  Age: 31 Year
  Sex: Female

DRUGS (1)
  1. METHYLDOPA [Suspect]
     Active Substance: METHYLDOPA
     Indication: Product used for unknown indication

REACTIONS (2)
  - Drug-induced liver injury [Unknown]
  - Maternal exposure during pregnancy [Unknown]
